FAERS Safety Report 11464722 (Version 2)
Quarter: 2015Q3

REPORT INFORMATION
  Report Type: Spontaneous
  Country: DE (occurrence: DE)
  Receive Date: 20150906
  Receipt Date: 20150909
  Transmission Date: 20151125
  Serious: Yes (Other)
  Sender: FDA-Public Use
  Company Number: DE-BRISTOL-MYERS SQUIBB COMPANY-BMS-2015-045719

PATIENT
  Age: 70 Year
  Sex: Female
  Weight: 72 kg

DRUGS (1)
  1. ELIQUIS [Suspect]
     Active Substance: APIXABAN
     Indication: CEREBROVASCULAR ACCIDENT PROPHYLAXIS
     Dosage: 5 MG, BID
     Route: 048
     Dates: start: 2012

REACTIONS (3)
  - Loose tooth [Recovering/Resolving]
  - Periodontitis [Recovering/Resolving]
  - Tooth loss [Recovering/Resolving]

NARRATIVE: CASE EVENT DATE: 201504
